FAERS Safety Report 16191517 (Version 1)
Quarter: 2019Q2

REPORT INFORMATION
  Report Type: Spontaneous
  Country: HR (occurrence: HR)
  Receive Date: 20190412
  Receipt Date: 20190412
  Transmission Date: 20190711
  Serious: Yes (Other)
  Sender: FDA-Public Use
  Company Number: HR-TEVA-2019-HR-1035597

PATIENT
  Age: 75 Year
  Sex: Female

DRUGS (6)
  1. PEPTORAN [Concomitant]
     Active Substance: RANITIDINE HYDROCHLORIDE
     Dosage: 150 MILLIGRAM DAILY;
     Route: 048
  2. TULIP [Concomitant]
     Indication: HYPERLIPIDAEMIA
     Dosage: 10 MILLIGRAM DAILY;
     Route: 048
  3. PRAXITEN [Concomitant]
     Active Substance: OXAZEPAM
     Indication: INSOMNIA
     Route: 048
  4. SERPENTIL [ESCITALOPRAM OXALATE] [Suspect]
     Active Substance: ESCITALOPRAM OXALATE
     Indication: DEPRESSION
     Dosage: 5 MILLIGRAM DAILY;
     Route: 048
     Dates: start: 20190308
  5. BRUNOQ [Concomitant]
     Indication: HYPERTENSION
     Dosage: 10 MILLIGRAM DAILY;
     Route: 048
  6. VALSACOR [Concomitant]
     Active Substance: VALSARTAN
     Indication: HYPERTENSION
     Dosage: 160 MILLIGRAM DAILY;
     Route: 045

REACTIONS (1)
  - Rash erythematous [Unknown]

NARRATIVE: CASE EVENT DATE: 20190310
